FAERS Safety Report 6847038-2 (Version None)
Quarter: 2010Q3

REPORT INFORMATION
  Report Type: 
  Country: None (occurrence: None)
  Receive Date: 20100716
  Receipt Date: 20100707
  Transmission Date: 20110219
  Serious: Yes (Hospitalization)
  Sender: FDA-Public Use
  Company Number: US-BIOGENIDEC-2010BI021246

PATIENT
  Age: 63 Year
  Sex: Male
  Weight: 97 kg

DRUGS (5)
  1. TYSABRI [Suspect]
     Indication: MULTIPLE SCLEROSIS
     Route: 042
     Dates: start: 20061205
  2. CITRULLINE [Concomitant]
     Indication: DEPRESSION
  3. TIZANIDINE HCL [Concomitant]
     Indication: MUSCLE SPASTICITY
  4. TRAZODONE HYDROCHLORIDE [Concomitant]
     Indication: INSOMNIA
  5. ASPIRIN [Concomitant]
     Indication: PRODUCT USED FOR UNKNOWN INDICATION
     Dates: end: 20100618

REACTIONS (1)
  - CEREBRAL INFARCTION [None]
